FAERS Safety Report 13071953 (Version 1)
Quarter: 2016Q4

REPORT INFORMATION
  Report Type: Spontaneous
  Country: US (occurrence: US)
  Receive Date: 20161228
  Receipt Date: 20161228
  Transmission Date: 20170207
  Serious: Yes (Other)
  Sender: FDA-Public Use
  Company Number: None

PATIENT
  Sex: Female
  Weight: 74.7 kg

DRUGS (1)
  1. GABA/MAGESIUM/TAURINE/THEANINE PROMISE PHARMACY [Suspect]
     Active Substance: DIETARY SUPPLEMENT
     Indication: DETOXIFICATION
     Route: 030
     Dates: start: 20161222, end: 20161222

REACTIONS (3)
  - Injection site reaction [None]
  - Injection site pain [None]
  - Injection site erythema [None]

NARRATIVE: CASE EVENT DATE: 20161228
